FAERS Safety Report 17960725 (Version 1)
Quarter: 2020Q2

REPORT INFORMATION
  Report Type: Spontaneous
  Country: IT (occurrence: IT)
  Receive Date: 20200630
  Receipt Date: 20200630
  Transmission Date: 20200714
  Serious: Yes (Other)
  Sender: FDA-Public Use
  Company Number: NVSC2020IT181374

PATIENT
  Age: 66 Year
  Sex: Male

DRUGS (3)
  1. IBUPROFEN. [Suspect]
     Active Substance: IBUPROFEN
     Indication: PRODUCT USED FOR UNKNOWN INDICATION
     Dosage: UNK
     Route: 065
  2. TRAMADOL HYDROCHLORIDE. [Suspect]
     Active Substance: TRAMADOL HYDROCHLORIDE
     Indication: PRODUCT USED FOR UNKNOWN INDICATION
     Dosage: UNK
     Route: 065
  3. CANNABIS [Interacting]
     Active Substance: CANNABIS SATIVA SUBSP. INDICA TOP
     Indication: NEURALGIA
     Dosage: 150 MG
     Route: 048

REACTIONS (4)
  - Bradyarrhythmia [Recovered/Resolved]
  - Balance disorder [Recovered/Resolved]
  - Presyncope [Recovered/Resolved]
  - Drug interaction [Unknown]
